FAERS Safety Report 18077563 (Version 2)
Quarter: 2020Q3

REPORT INFORMATION
  Report Type: Report from Study
  Country: US (occurrence: US)
  Receive Date: 20200727
  Receipt Date: 20200807
  Transmission Date: 20201103
  Serious: Yes (Hospitalization)
  Sender: FDA-Public Use
  Company Number: US-BIOGEN-2020BI00900747

PATIENT
  Sex: Female

DRUGS (1)
  1. TECFIDERA [Suspect]
     Active Substance: DIMETHYL FUMARATE
     Indication: MULTIPLE SCLEROSIS
     Route: 065
     Dates: start: 20200616

REACTIONS (6)
  - Flushing [Unknown]
  - Dizziness [Unknown]
  - Vomiting [Unknown]
  - Multiple sclerosis relapse [Unknown]
  - Nausea [Unknown]
  - Multiple sclerosis [Unknown]
